FAERS Safety Report 24366634 (Version 1)
Quarter: 2024Q3

REPORT INFORMATION
  Report Type: Spontaneous
  Country: US (occurrence: None)
  Receive Date: 20240925
  Receipt Date: 20240925
  Transmission Date: 20241017
  Serious: Yes (Other)
  Sender: Public
  Company Number: None

PATIENT
  Age: 70 Year
  Sex: Female
  Weight: 72 kg

DRUGS (4)
  1. REPATHA [Suspect]
     Active Substance: EVOLOCUMAB
     Indication: Cardiac disorder
     Dosage: OTHER QUANTITY : 1 INJECTION(S);?OTHER FREQUENCY : ONCE EVERY 2 WEEKS;?OTHER ROUTE : INJECTED;?
     Route: 050
     Dates: start: 20240828, end: 20240828
  2. ALBUTEROL [Concomitant]
     Active Substance: ALBUTEROL
  3. LORAZEPAM [Concomitant]
     Active Substance: LORAZEPAM
  4. Gemtessa [Concomitant]

REACTIONS (7)
  - Middle insomnia [None]
  - Chest pain [None]
  - Dyspnoea [None]
  - Headache [None]
  - Therapy interrupted [None]
  - Pain [None]
  - Depression [None]

NARRATIVE: CASE EVENT DATE: 20240828
